FAERS Safety Report 16061066 (Version 1)
Quarter: 2019Q1

REPORT INFORMATION
  Report Type: Spontaneous
  Country: US (occurrence: US)
  Receive Date: 20190211
  Receipt Date: 20190211
  Transmission Date: 20190418
  Serious: No
  Sender: FDA-Public Use
  Company Number: None

PATIENT
  Age: 68 Year
  Sex: Male

DRUGS (2)
  1. PREDNISONE. [Suspect]
     Active Substance: PREDNISONE
  2. ZYTIGA TAB 500MG [Suspect]
     Active Substance: ABIRATERONE ACETATE
     Route: 048
     Dates: start: 201804

REACTIONS (4)
  - Hypothyroidism [None]
  - Abdominal pain upper [None]
  - Fatigue [None]
  - Hot flush [None]

NARRATIVE: CASE EVENT DATE: 20190211
